FAERS Safety Report 7610203-0 (Version None)
Quarter: 2011Q3

REPORT INFORMATION
  Report Type: 
  Country: None (occurrence: None)
  Receive Date: 20110715
  Receipt Date: 20110707
  Transmission Date: 20111222
  Serious: No
  Sender: FDA-Public Use
  Company Number: US-BIOGENIDEC-2011BI025491

PATIENT
  Sex: Female

DRUGS (1)
  1. AVONEX [Suspect]
     Indication: MULTIPLE SCLEROSIS
     Route: 030
     Dates: end: 20110315

REACTIONS (6)
  - FALL [None]
  - CONTUSION [None]
  - BLINDNESS [None]
  - HYPOAESTHESIA [None]
  - PARAESTHESIA [None]
  - MUSCLE TIGHTNESS [None]
